FAERS Safety Report 5219137-2 (Version None)
Quarter: 2007Q1

REPORT INFORMATION
  Report Type: 
  Country: None (occurrence: None)
  Receive Date: 20070125
  Receipt Date: 20070118
  Transmission Date: 20070707
  Serious: Yes (Death)
  Sender: FDA-Public Use
  Company Number: US-JNJFOC-20070104552

PATIENT
  Sex: Male

DRUGS (10)
  1. INFLIXIMAB [Suspect]
     Indication: RHEUMATOID ARTHRITIS
     Route: 042
  2. METHOTREXATE [Concomitant]
  3. PREDNISONE [Concomitant]
  4. GLUCOSAMINE/CHONDROITIN [Concomitant]
     Dosage: 1500/1200 3 TIMES DAILY
  5. LEVOXYL [Concomitant]
  6. LOPRESSOR [Concomitant]
  7. NITROGLYCERIN [Concomitant]
  8. ASPIRIN [Concomitant]
  9. VERAPAMIL [Concomitant]
  10. ZOCOR [Concomitant]

REACTIONS (1)
  - OESOPHAGEAL ADENOCARCINOMA [None]
